FAERS Safety Report 4651696-0 (Version None)
Quarter: 2005Q2

REPORT INFORMATION
  Report Type: 
  Country: None (occurrence: None)
  Receive Date: 20050404
  Receipt Date: 20041130
  Transmission Date: 20051028
  Serious: No
  Sender: FDA-Public Use
  Company Number: USA041284890

PATIENT
  Age: 37 Year
  Sex: Male

DRUGS (5)
  1. CYMBALTA [Suspect]
     Indication: NEUROPATHY
     Dosage: 60 MG/1 DAY
     Dates: start: 20041101
  2. NORTRIPTYLINE [Concomitant]
  3. TOPROL-XL [Concomitant]
  4. ASPIRIN [Concomitant]
  5. PLAVIX [Concomitant]

REACTIONS (2)
  - BLOOD GLUCOSE INCREASED [None]
  - STRESS [None]
